FAERS Safety Report 5055791-6 (Version None)
Quarter: 2006Q3

REPORT INFORMATION
  Report Type: 
  Country: None (occurrence: None)
  Receive Date: 20060720
  Receipt Date: 20060714
  Transmission Date: 20061208
  Serious: Yes (Hospitalization)
  Sender: FDA-Public Use
  Company Number: PHFR2006GB02237

PATIENT
  Age: 60 Year
  Sex: Male
  Weight: 85 kg

DRUGS (5)
  1. LOSARTAN POSTASSIUM [Concomitant]
     Indication: DILATATION VENTRICULAR
     Dosage: 25 MG, QD
     Route: 048
     Dates: start: 20060418
  2. OMEPRAZOLE [Concomitant]
     Indication: DUODENITIS
     Dosage: 20 MG, QD
     Route: 048
     Dates: start: 20031028
  3. PROPRANOLOL [Concomitant]
     Dosage: 40 MG, BID
     Route: 048
     Dates: start: 20060526
  4. SERETIDE [Concomitant]
     Indication: CHRONIC OBSTRUCTIVE PULMONARY DISEASE
     Dosage: 2 PUFFS, BID
     Dates: start: 20041007
  5. CARBAMAZEPINE [Suspect]
     Indication: NEURALGIA
     Dosage: 200 MG, BID
     Route: 048
     Dates: start: 19981125, end: 20060608

REACTIONS (4)
  - ALCOHOLIC LIVER DISEASE [None]
  - BLOOD SODIUM DECREASED [None]
  - HYPONATRAEMIA [None]
  - PNEUMONIA [None]
